FAERS Safety Report 7405926-2 (Version None)
Quarter: 2011Q2

REPORT INFORMATION
  Report Type: 
  Country: None (occurrence: None)
  Receive Date: 20110411
  Receipt Date: 20110330
  Transmission Date: 20111010
  Serious: Yes (Hospitalization, Other)
  Sender: FDA-Public Use
  Company Number: US-JNJFOC-20110400239

PATIENT
  Age: 32 Year
  Sex: Female
  Weight: 68.04 kg

DRUGS (2)
  1. TOPAMAX [Suspect]
     Indication: MIGRAINE PROPHYLAXIS
     Route: 048
  2. ORTHO CYCLEN-28 [Suspect]
     Indication: CONTRACEPTION
     Route: 048

REACTIONS (2)
  - THYROID CANCER [None]
  - MIGRAINE [None]
